FAERS Safety Report 23458248 (Version 3)
Quarter: 2024Q1

REPORT INFORMATION
  Report Type: Report from Study
  Country: DE (occurrence: DE)
  Receive Date: 20240130
  Receipt Date: 20240214
  Transmission Date: 20240409
  Serious: Yes (Hospitalization, Other)
  Sender: FDA-Public Use
  Company Number: DE-PFM-2024-00486

PATIENT
  Sex: Male
  Weight: 92 kg

DRUGS (6)
  1. BRAFTOVI [Suspect]
     Active Substance: ENCORAFENIB
     Indication: Colorectal cancer
     Dosage: 300 MG, UNK
     Route: 048
     Dates: start: 20230111, end: 20230203
  2. CETUXIMAB [Suspect]
     Active Substance: CETUXIMAB
     Indication: Colorectal cancer
     Dosage: 250 MG/M2, WEEKLY
     Route: 042
     Dates: start: 20230112, end: 20230126
  3. CANDESARTAN CILEXETIL [Concomitant]
     Active Substance: CANDESARTAN CILEXETIL
     Indication: Coronary artery disease
     Dosage: 16 MG, DAILY
     Route: 048
     Dates: start: 20200116
  4. AMLODIPIN ACTAVIS [AMLODIPINE BESILATE] [Concomitant]
     Indication: Hypertension
     Dosage: 5 MG, DAILY
     Route: 048
     Dates: start: 20200116
  5. METOPROLOL [Concomitant]
     Active Substance: METOPROLOL
     Indication: Coronary artery disease
     Dosage: 100 MG, DAILY
     Route: 048
     Dates: start: 20200116
  6. ALLOPURINOL [Concomitant]
     Active Substance: ALLOPURINOL
     Indication: Diagnostic procedure
     Dosage: 300 MG, DAILY
     Route: 048
     Dates: start: 20200116

REACTIONS (1)
  - Abdominal bruit [Recovered/Resolved]

NARRATIVE: CASE EVENT DATE: 20230204
